FAERS Safety Report 18257702 (Version 1)
Quarter: 2020Q3

REPORT INFORMATION
  Report Type: Report from Study
  Country: IT (occurrence: IT)
  Receive Date: 20200911
  Receipt Date: 20200911
  Transmission Date: 20201103
  Serious: Yes (Other)
  Sender: FDA-Public Use
  Company Number: IT-ACCORD-200452

PATIENT
  Sex: Male

DRUGS (4)
  1. PAZOPANIB [Suspect]
     Active Substance: PAZOPANIB
     Indication: RHABDOMYOSARCOMA
     Dosage: MAXIMUM 600 MG/DAY, PER OS PER 21 DAYS OF EACH CYCLE, LEAST 1 H BEFORE OR 2 H AFTER A MEAL
     Route: 048
  2. IRINOTECAN [Suspect]
     Active Substance: IRINOTECAN
     Indication: RHABDOMYOSARCOMA
     Route: 042
  3. VINCRISTINE [Suspect]
     Active Substance: VINCRISTINE
     Indication: RHABDOMYOSARCOMA
     Dosage: DAYS 1 AND 8 OF EACH CYCLE
     Route: 042
  4. CEFIXIME/CEFIXIME TRIHYDRATE [Concomitant]
     Active Substance: CEFIXIME
     Indication: DIARRHOEA
     Dosage: MAXIMUM 400 MG/DAY, FIRST WEEK OF EACH CYCLE
     Route: 048

REACTIONS (2)
  - Off label use [Unknown]
  - Hypothyroidism [Unknown]
